FAERS Safety Report 20501564 (Version 1)
Quarter: 2022Q1

REPORT INFORMATION
  Report Type: Spontaneous
  Country: CN (occurrence: CN)
  Receive Date: 20220222
  Receipt Date: 20220222
  Transmission Date: 20220423
  Serious: Yes (Other)
  Sender: FDA-Public Use
  Company Number: CN-PFIZER INC-202200223740

PATIENT
  Age: 44 Year
  Sex: Male
  Weight: 75 kg

DRUGS (6)
  1. VORICONAZOLE [Suspect]
     Active Substance: VORICONAZOLE
     Indication: Aspergillus infection
     Dosage: 400 MG, 2X/DAY
     Route: 041
     Dates: start: 20190620, end: 20190620
  2. VORICONAZOLE [Suspect]
     Active Substance: VORICONAZOLE
     Dosage: 200 MG, 2X/DAY
     Route: 041
     Dates: start: 20190621
  3. VORICONAZOLE [Suspect]
     Active Substance: VORICONAZOLE
     Dosage: 250 MG, 2X/DAY
     Route: 041
  4. VORICONAZOLE [Suspect]
     Active Substance: VORICONAZOLE
     Dosage: 300 MG, 2X/DAY
     Route: 041
     Dates: start: 20190808
  5. VORICONAZOLE [Suspect]
     Active Substance: VORICONAZOLE
     Dosage: 400 MG, 2X/DAY
     Route: 041
     Dates: start: 20190820
  6. MICAFUNGIN [Concomitant]
     Active Substance: MICAFUNGIN
     Indication: Antifungal treatment
     Dosage: 150 MG, 1X/DAY
     Route: 041
     Dates: start: 20190626, end: 20191017

REACTIONS (3)
  - Gamma-glutamyltransferase increased [Recovered/Resolved]
  - Blood alkaline phosphatase increased [Recovered/Resolved]
  - Drug ineffective [Unknown]
